FAERS Safety Report 5834821-5 (Version None)
Quarter: 2008Q3

REPORT INFORMATION
  Report Type: 
  Country: None (occurrence: None)
  Receive Date: 20080805
  Receipt Date: 20080728
  Transmission Date: 20090109
  Serious: Yes (Other)
  Sender: FDA-Public Use
  Company Number: US-ELI_LILLY_AND_COMPANY-US200807005585

PATIENT
  Sex: Male

DRUGS (3)
  1. HUMALOG [Suspect]
     Dosage: UNK, 3/D
  2. LANTUS [Concomitant]
     Dosage: 20 U, EACH EVENING
  3. LANTUS [Concomitant]
     Dosage: 39 U, EACH MORNING

REACTIONS (7)
  - AMNESIA [None]
  - CATARACT [None]
  - CEREBROVASCULAR ACCIDENT [None]
  - CONFUSIONAL STATE [None]
  - EYE HAEMORRHAGE [None]
  - HEMIPARESIS [None]
  - SOMNOLENCE [None]
